FAERS Safety Report 15565830 (Version 1)
Quarter: 2018Q4

REPORT INFORMATION
  Report Type: Report from Study
  Country: CA (occurrence: CA)
  Receive Date: 20181030
  Receipt Date: 20181030
  Transmission Date: 20190205
  Serious: Yes (Other)
  Sender: FDA-Public Use
  Company Number: CA-PFIZER INC-2018441488

PATIENT
  Age: 68 Year
  Sex: Female

DRUGS (8)
  1. SANDOSTATIN [Suspect]
     Active Substance: OCTREOTIDE ACETATE
     Indication: ACROMEGALY
     Dosage: 30 MG, MONTHLY
     Route: 030
  2. HYDROCORTISONE ACETATE. [Concomitant]
     Active Substance: HYDROCORTISONE ACETATE
     Dosage: UNK
     Route: 065
  3. OLMETEC [Concomitant]
     Active Substance: OLMESARTAN MEDOXOMIL
     Dosage: UNK
     Route: 065
  4. MORPHINE SULFATE. [Suspect]
     Active Substance: MORPHINE SULFATE
     Dosage: UNK
     Route: 065
  5. PMS-CARVEDILOL [Concomitant]
     Dosage: UNK
     Route: 065
  6. TERAZOSIN HYDROCHLORIDE. [Concomitant]
     Active Substance: TERAZOSIN HYDROCHLORIDE
     Dosage: UNK
     Route: 065
  7. ROSUVASTATIN CALCIUM. [Concomitant]
     Active Substance: ROSUVASTATIN CALCIUM
     Dosage: UNK
     Route: 065
  8. CODEINE [Suspect]
     Active Substance: CODEINE
     Dosage: UNK
     Route: 065

REACTIONS (13)
  - Malaise [Unknown]
  - Bradycardia [Unknown]
  - Influenza [Unknown]
  - Movement disorder [Unknown]
  - Kidney infection [Unknown]
  - Needle issue [Unknown]
  - Back disorder [Unknown]
  - Blood pressure systolic increased [Unknown]
  - Drug hypersensitivity [Unknown]
  - Hypertonic bladder [Unknown]
  - Blood pressure increased [Unknown]
  - Body temperature decreased [Unknown]
  - Cystitis [Unknown]
